FAERS Safety Report 23784552 (Version 1)
Quarter: 2024Q2

REPORT INFORMATION
  Report Type: Spontaneous
  Country: US (occurrence: None)
  Receive Date: 20240425
  Receipt Date: 20240425
  Transmission Date: 20240716
  Serious: Yes (Other)
  Sender: FDA-Public Use
  Company Number: None

PATIENT
  Age: 69 Year
  Sex: Female
  Weight: 98.55 kg

DRUGS (12)
  1. PEPCID [Suspect]
     Active Substance: FAMOTIDINE
     Indication: Rash
     Dosage: OTHER QUANTITY : 1 TABLET(S);?FREQUENCY : AT BEDTIME;?
     Route: 048
     Dates: start: 20240418, end: 20240418
  2. PEPCID [Suspect]
     Active Substance: FAMOTIDINE
     Indication: Pruritus
  3. PEPCID [Suspect]
     Active Substance: FAMOTIDINE
     Indication: Sleep disorder
  4. Lantanapost Glipizide [Concomitant]
  5. BENAZEPRIL [Concomitant]
     Active Substance: BENAZEPRIL HYDROCHLORIDE
  6. nifedipine hyydrochorathazide [Concomitant]
  7. GABAPENTIN [Concomitant]
     Active Substance: GABAPENTIN
  8. CALCIUM [Suspect]
     Active Substance: CALCIUM
  9. IRON [Concomitant]
     Active Substance: IRON
  10. VITAMIN B12 [Concomitant]
     Active Substance: CYANOCOBALAMIN
  11. subliminal [Concomitant]
  12. daily vitamin [Concomitant]

REACTIONS (11)
  - Middle insomnia [None]
  - Muscle spasms [None]
  - Dizziness [None]
  - Feeling hot [None]
  - Feeling abnormal [None]
  - Feeling abnormal [None]
  - Hyperhidrosis [None]
  - Near death experience [None]
  - Fear [None]
  - Hallucination [None]
  - Nightmare [None]

NARRATIVE: CASE EVENT DATE: 20240418
